FAERS Safety Report 19673164 (Version 4)
Quarter: 2021Q3

REPORT INFORMATION
  Report Type: Report from Study
  Country: None (occurrence: US)
  Receive Date: 20210809
  Receipt Date: 20210915
  Transmission Date: 20211014
  Serious: Yes (Other)
  Sender: FDA-Public Use
  Company Number: US-ABBVIE-21K-163-4026910-00

PATIENT
  Age: 63 Year
  Sex: Male

DRUGS (2)
  1. RINVOQ [Suspect]
     Active Substance: UPADACITINIB
     Route: 048
  2. RINVOQ [Suspect]
     Active Substance: UPADACITINIB
     Indication: RHEUMATOID ARTHRITIS
     Route: 048

REACTIONS (7)
  - Dry throat [Unknown]
  - Pain [Unknown]
  - Oropharyngeal pain [Unknown]
  - Knee arthroplasty [Recovering/Resolving]
  - Osteoarthritis [Unknown]
  - Swelling [Unknown]
  - Cough [Unknown]

NARRATIVE: CASE EVENT DATE: 20210730
